FAERS Safety Report 21372915 (Version 1)
Quarter: 2022Q3

REPORT INFORMATION
  Report Type: Spontaneous
  Country: US (occurrence: US)
  Receive Date: 20220924
  Receipt Date: 20220924
  Transmission Date: 20221026
  Serious: Yes (Hospitalization, Other)
  Sender: FDA-Public Use
  Company Number: US-ABBVIE-4128691

PATIENT
  Sex: Female
  Weight: 85.275 kg

DRUGS (18)
  1. LEVOTHYROXINE [Suspect]
     Active Substance: LEVOTHYROXINE
     Indication: Thyroid hormones decreased
  2. Covid 19 vaccine [Concomitant]
     Indication: COVID-19 immunisation
     Dosage: MODERNA
     Route: 030
     Dates: start: 20220406, end: 20220406
  3. Covid 19 vaccine [Concomitant]
     Indication: COVID-19 immunisation
     Dosage: MODERNA
     Route: 030
     Dates: start: 20200201, end: 20200201
  4. Covid 19 vaccine [Concomitant]
     Indication: COVID-19 immunisation
     Dosage: MODERNA
     Route: 030
     Dates: start: 20200106, end: 20200106
  5. Covid 19 vaccine [Concomitant]
     Indication: COVID-19 immunisation
     Dosage: MODERNA
     Route: 030
     Dates: start: 20210818, end: 20210818
  6. COREG [Concomitant]
     Active Substance: CARVEDILOL
     Indication: Hypertension
  7. VFEND [Concomitant]
     Active Substance: VORICONAZOLE
     Indication: Fusarium infection
  8. CARAFATE [Concomitant]
     Active Substance: SUCRALFATE
     Indication: Nausea
  9. LIPITOR [Concomitant]
     Active Substance: ATORVASTATIN CALCIUM
     Indication: Blood cholesterol
  10. VANCOMYCIN [Concomitant]
     Active Substance: VANCOMYCIN
     Indication: Wound
  11. Bactrim DS 800-16 [Concomitant]
     Indication: Wound
  12. IMBRUVICA [Suspect]
     Active Substance: IBRUTINIB
     Indication: Chronic lymphocytic leukaemia
     Route: 048
     Dates: start: 202206
  13. IMBRUVICA [Suspect]
     Active Substance: IBRUTINIB
     Indication: Chronic lymphocytic leukaemia
     Route: 048
     Dates: start: 20150708, end: 20220527
  14. PROTONIX [Concomitant]
     Active Substance: PANTOPRAZOLE SODIUM
     Indication: Abdominal discomfort
  15. LISINOPRIL [Concomitant]
     Active Substance: LISINOPRIL
     Indication: Hypertension
  16. CLOBETASOL [Concomitant]
     Active Substance: CLOBETASOL
     Indication: Blister
  17. VESICARE [Concomitant]
     Active Substance: SOLIFENACIN SUCCINATE
     Indication: Bladder spasm
  18. VASELINE PURE [Concomitant]
     Active Substance: PETROLATUM
     Indication: Blister

REACTIONS (9)
  - Loss of consciousness [Recovered/Resolved]
  - Skin wound [Recovering/Resolving]
  - Nausea [Recovered/Resolved]
  - Fusarium infection [Unknown]
  - Blister [Recovering/Resolving]
  - Wound secretion [Unknown]
  - Blister [Unknown]
  - Burning sensation [Unknown]
  - Skin exfoliation [Unknown]

NARRATIVE: CASE EVENT DATE: 20220101
